FAERS Safety Report 24951393 (Version 1)
Quarter: 2025Q1

REPORT INFORMATION
  Report Type: Spontaneous
  Country: US (occurrence: US)
  Receive Date: 20250210
  Receipt Date: 20250210
  Transmission Date: 20250409
  Serious: No
  Sender: TAKEDA
  Company Number: US-TAKEDA-2025TUS012471

PATIENT
  Sex: Male
  Weight: 91 kg

DRUGS (1)
  1. EOHILIA [Suspect]
     Active Substance: BUDESONIDE
     Indication: Eosinophilic oesophagitis
     Dosage: 2 MILLIGRAM, QD

REACTIONS (3)
  - No adverse event [Unknown]
  - Product storage error [Unknown]
  - Off label use [Unknown]
